FAERS Safety Report 9959907 (Version 1)
Quarter: 2014Q1

REPORT INFORMATION
  Report Type: Report from Study
  Country: US (occurrence: US)
  Receive Date: 20140305
  Receipt Date: 20140305
  Transmission Date: 20141002
  Serious: No
  Sender: FDA-Public Use
  Company Number: US-ABBVIE-13P-163-1106435-00

PATIENT
  Age: 22 Year
  Sex: Male

DRUGS (7)
  1. HUMIRA [Suspect]
     Indication: COLITIS ULCERATIVE
     Dates: start: 20130517
  2. HUMIRA [Suspect]
     Dates: start: 20130531
  3. HUMIRA [Suspect]
     Dates: start: 20130614
  4. ASACOL [Concomitant]
     Indication: COLITIS ULCERATIVE
     Dosage: 800 3 PILLS TWICE DAILY
  5. FOLIC ACID [Concomitant]
     Indication: VITAMIN SUPPLEMENTATION
     Dosage: DAILY
  6. ALLER TEC [Concomitant]
     Indication: HYPERSENSITIVITY
     Dosage: DAILY
  7. MULTIVITAMIN [Concomitant]
     Indication: VITAMIN SUPPLEMENTATION
     Dosage: DAILY

REACTIONS (2)
  - Injection site swelling [Recovering/Resolving]
  - Injection site swelling [Recovering/Resolving]
